FAERS Safety Report 18423828 (Version 1)
Quarter: 2020Q4

REPORT INFORMATION
  Report Type: Report from Study
  Country: IE (occurrence: IE)
  Receive Date: 20201024
  Receipt Date: 20201024
  Transmission Date: 20210114
  Serious: Yes (Other)
  Sender: FDA-Public Use
  Company Number: IE-AMGEN-IRLSL2019030399

PATIENT
  Age: 74 Year
  Sex: Male

DRUGS (14)
  1. ARANESP [Suspect]
     Active Substance: DARBEPOETIN ALFA
     Dosage: 40 MICROGRAM, QWK
     Route: 058
  2. ARANESP [Suspect]
     Active Substance: DARBEPOETIN ALFA
     Dosage: 60 MICROGRAM, QWK
     Route: 058
     Dates: start: 201911
  3. XALATAN [Concomitant]
     Active Substance: LATANOPROST
     Dosage: 0.005 MILLIGRAM, QD
     Route: 050
  4. ONE ALPHA [Concomitant]
     Active Substance: ALFACALCIDOL
     Dosage: 0.25 MICROGRAM, QD
     Route: 050
  5. ARANESP [Suspect]
     Active Substance: DARBEPOETIN ALFA
     Indication: CHRONIC KIDNEY DISEASE
     Dosage: 30 MICROGRAM, QWK
     Route: 058
  6. IMURAN [Concomitant]
     Active Substance: AZATHIOPRINE
     Dosage: 50 MILLIGRAM, QD
     Route: 050
  7. TAMNEXYL XL [Concomitant]
     Dosage: 400 MICROGRAM, QD
     Route: 050
  8. GALFER [Concomitant]
     Active Substance: IRON
     Dosage: 305 MILLIGRAM, QD
     Route: 050
  9. PARALIEF [Concomitant]
     Dosage: 500 MILLIGRAM, AS NECESSARY (PRN)
     Route: 050
  10. SERETIDE [Concomitant]
     Active Substance: FLUTICASONE PROPIONATE\SALMETEROL XINAFOATE
     Dosage: 250 MICROGRAM, BID
     Route: 050
  11. ARANESP [Suspect]
     Active Substance: DARBEPOETIN ALFA
     Dosage: 50 MICROGRAM, QWK
     Route: 058
     Dates: start: 2019
  12. EMAZOLE [Concomitant]
     Active Substance: ESOMEPRAZOLE
     Dosage: 40 MILLIGRAM, QD
     Route: 050
  13. SODIUM BICARBONATE. [Concomitant]
     Active Substance: SODIUM BICARBONATE
     Dosage: 1800 MILLIGRAM, QD
     Route: 050
  14. AZOPT [Concomitant]
     Active Substance: BRINZOLAMIDE
     Dosage: 10 MILLIGRAM, QD
     Route: 050

REACTIONS (2)
  - Radiotherapy [Unknown]
  - Haemoglobin decreased [Recovering/Resolving]

NARRATIVE: CASE EVENT DATE: 20191001
